FAERS Safety Report 12265368 (Version 2)
Quarter: 2016Q2

REPORT INFORMATION
  Report Type: Spontaneous
  Country: US (occurrence: US)
  Receive Date: 20160413
  Receipt Date: 20160413
  Transmission Date: 20160815
  Serious: Yes (Death, Other)
  Sender: FDA-Public Use
  Company Number: PHHY2016US047849

PATIENT
  Sex: Female

DRUGS (9)
  1. CICLOSPORIN [Suspect]
     Active Substance: CYCLOSPORINE
     Indication: PROPHYLAXIS AGAINST GRAFT VERSUS HOST DISEASE
     Route: 065
  2. FLUDARABINE [Suspect]
     Active Substance: FLUDARABINE PHOSPHATE
     Indication: STEM CELL TRANSPLANT
  3. FLUDARABINE [Suspect]
     Active Substance: FLUDARABINE PHOSPHATE
     Indication: BONE MARROW CONDITIONING REGIMEN
     Dosage: 30 MG/M2/DOSE TO 40 MG/M2/DOSE
     Route: 065
  4. CAMPATH [Suspect]
     Active Substance: ALEMTUZUMAB
     Indication: STEM CELL TRANSPLANT
  5. FILGRASTIM [Suspect]
     Active Substance: FILGRASTIM
     Indication: PRODUCT USED FOR UNKNOWN INDICATION
     Dosage: 5 UG/KG, UNK
     Route: 065
  6. CAMPATH [Suspect]
     Active Substance: ALEMTUZUMAB
     Indication: BONE MARROW CONDITIONING REGIMEN
     Route: 065
  7. MELPHALAN [Suspect]
     Active Substance: MELPHALAN
     Indication: STEM CELL TRANSPLANT
  8. MELPHALAN [Suspect]
     Active Substance: MELPHALAN
     Indication: BONE MARROW CONDITIONING REGIMEN
     Dosage: 70 MG/M2, UNK
     Route: 065
  9. CICLOSPORIN [Suspect]
     Active Substance: CYCLOSPORINE
     Indication: STEM CELL TRANSPLANT

REACTIONS (6)
  - BK virus infection [Unknown]
  - Staphylococcal sepsis [Unknown]
  - Cytomegalovirus viraemia [Unknown]
  - Multiple organ dysfunction syndrome [Fatal]
  - Acute graft versus host disease in skin [Unknown]
  - Chronic graft versus host disease in skin [Unknown]
